FAERS Safety Report 6686362-3 (Version None)
Quarter: 2010Q2

REPORT INFORMATION
  Report Type: 
  Country: None (occurrence: None)
  Receive Date: 20100419
  Receipt Date: 20100408
  Transmission Date: 20101027
  Serious: Yes (Other)
  Sender: FDA-Public Use
  Company Number: JP-JNJFOC-20100403123

PATIENT
  Sex: Female
  Weight: 43 kg

DRUGS (14)
  1. DOXIL [Suspect]
     Indication: OVARIAN CANCER RECURRENT
     Dosage: COURSE 3
     Route: 042
  2. DOXIL [Suspect]
     Dosage: 1ST COURSE
     Route: 042
  3. DOXIL [Suspect]
     Dosage: COURSE 2
     Route: 042
  4. ALFAROL [Concomitant]
     Route: 048
  5. ASPIRIN [Concomitant]
     Route: 048
  6. LOSARTAN POTASSIUM AND HYDROCHLOROTHIAZIDE [Concomitant]
     Route: 048
  7. AMLODIN [Concomitant]
     Route: 048
  8. RIZE [Concomitant]
     Route: 048
  9. RIZE [Concomitant]
     Route: 048
  10. DAI-KENCHU-TO [Concomitant]
     Route: 048
  11. ALDACTONE [Concomitant]
     Indication: HYPERTENSION
     Route: 048
  12. LASIX [Concomitant]
     Indication: HYPERTENSION
     Route: 048
  13. GASLON N [Concomitant]
     Route: 048
  14. OMEPRAL [Concomitant]
     Route: 048

REACTIONS (1)
  - NEUROPATHY PERIPHERAL [None]
